FAERS Safety Report 10043271 (Version 1)
Quarter: 2014Q1

REPORT INFORMATION
  Report Type: Spontaneous
  Country: US (occurrence: None)
  Receive Date: 20140327
  Receipt Date: 20140327
  Transmission Date: 20141002
  Serious: Yes (Disabling, Congenital Anomaly)
  Sender: FDA-Public Use
  Company Number: None

PATIENT
  Sex: Male
  Weight: 4.54 kg

DRUGS (1)
  1. PITOCIN [Suspect]
     Indication: INDUCED LABOUR
     Dates: start: 20081119

REACTIONS (8)
  - Mental retardation [None]
  - Encephalopathy [None]
  - Foetal distress syndrome [None]
  - Brain injury [None]
  - Autism [None]
  - Language disorder [None]
  - Caesarean section [None]
  - Maternal drugs affecting foetus [None]
